FAERS Safety Report 8811345 (Version 3)
Quarter: 2012Q4

REPORT INFORMATION
  Report Type: 
  Country: US (occurrence: US)
  Receive Date: 20120927
  Receipt Date: 20121128
  Transmission Date: 20130627
  Serious: No
  Sender: FDA-Public Use
  Company Number: US-PFIZER INC-2012238041

PATIENT
  Age: 57 Year
  Sex: Female

DRUGS (1)
  1. NEURONTIN [Suspect]
     Indication: CHRONIC BACK PAIN
     Dosage: 300 mg, TID x 90 days
     Route: 048

REACTIONS (3)
  - Drug effect incomplete [Unknown]
  - Vomiting [Unknown]
  - Abdominal discomfort [Unknown]
